FAERS Safety Report 22085901 (Version 1)
Quarter: 2023Q1

REPORT INFORMATION
  Report Type: Spontaneous
  Country: US (occurrence: US)
  Receive Date: 20230310
  Receipt Date: 20230310
  Transmission Date: 20230418
  Serious: No
  Sender: FDA-Public Use
  Company Number: US-BRISTOL-MYERS SQUIBB COMPANY-2023-032152

PATIENT
  Age: 75 Year
  Sex: Female
  Weight: 130.18 kg

DRUGS (1)
  1. REVLIMID [Suspect]
     Active Substance: LENALIDOMIDE
     Indication: Mantle cell lymphoma
     Dosage: FREQ: DAILY FOR 21DAYS
     Route: 048
     Dates: start: 20230101, end: 20230303

REACTIONS (1)
  - Urinary tract infection [Unknown]
